FAERS Safety Report 5809299-8 (Version None)
Quarter: 2008Q3

REPORT INFORMATION
  Report Type: 
  Country: None (occurrence: None)
  Receive Date: 20080714
  Receipt Date: 20080624
  Transmission Date: 20090109
  Serious: No
  Sender: FDA-Public Use
  Company Number: US-BOEHRINGER INGELHEIM GMBH, GERMANY-2008-BP-09795BP

PATIENT
  Sex: Female

DRUGS (7)
  1. SPIRIVA [Suspect]
     Indication: CHRONIC OBSTRUCTIVE PULMONARY DISEASE
     Route: 055
     Dates: start: 20060101
  2. OXYGEN [Concomitant]
  3. CARDIZEM [Concomitant]
  4. DETROL [Concomitant]
     Indication: URINARY INCONTINENCE
  5. LASIX [Concomitant]
     Indication: JOINT SWELLING
  6. FOSAMAX [Concomitant]
  7. ADVAIR DISKUS 100/50 [Concomitant]

REACTIONS (3)
  - DRY MOUTH [None]
  - VISION BLURRED [None]
  - VISUAL IMPAIRMENT [None]
